FAERS Safety Report 21225469 (Version 3)
Quarter: 2023Q1

REPORT INFORMATION
  Report Type: Spontaneous
  Country: US (occurrence: US)
  Receive Date: 20220818
  Receipt Date: 20230328
  Transmission Date: 20230417
  Serious: Yes (Other)
  Sender: FDA-Public Use
  Company Number: US-VIIV HEALTHCARE LIMITED-US2022AMR119111

PATIENT

DRUGS (5)
  1. JULUCA [Suspect]
     Active Substance: DOLUTEGRAVIR SODIUM\RILPIVIRINE HYDROCHLORIDE
     Indication: Product used for unknown indication
     Dosage: UNK UNK, QD
  2. BIKTARVY [Concomitant]
     Active Substance: BICTEGRAVIR SODIUM\EMTRICITABINE\TENOFOVIR ALAFENAMIDE FUMARATE
     Indication: Product used for unknown indication
     Dosage: UNK
  3. ABACAVIR\LAMIVUDINE [Concomitant]
     Active Substance: ABACAVIR\LAMIVUDINE
     Indication: Product used for unknown indication
     Dosage: UNK
  4. NEVIRAPINE [Concomitant]
     Active Substance: NEVIRAPINE
     Indication: Product used for unknown indication
     Dosage: UNK
  5. FOSAMPRENAVIR\RITONAVIR [Concomitant]
     Active Substance: FOSAMPRENAVIR\RITONAVIR
     Indication: Product used for unknown indication
     Dosage: UNK

REACTIONS (2)
  - Hepatic failure [Unknown]
  - Hepatic enzyme increased [Recovered/Resolved]
